FAERS Safety Report 22117589 (Version 2)
Quarter: 2023Q2

REPORT INFORMATION
  Report Type: Spontaneous
  Country: PL (occurrence: PL)
  Receive Date: 20230321
  Receipt Date: 20230407
  Transmission Date: 20230721
  Serious: Yes (Hospitalization)
  Sender: FDA-Public Use
  Company Number: PL-BoehringerIngelheim-2023-BI-224764

PATIENT
  Age: 70 Year
  Sex: Male

DRUGS (13)
  1. JARDIANCE [Suspect]
     Active Substance: EMPAGLIFLOZIN
     Indication: Cardiac failure
     Dosage: IN THE MORNING
     Dates: start: 20220509
  2. METFORMIN HYDROCHLORIDE [Concomitant]
     Active Substance: METFORMIN HYDROCHLORIDE
     Indication: Diabetes mellitus
     Dosage: GRADUAL INTRODUCTION OF METFORMIN IN DOSE 3 X 500 MG  BY MAIN MEALS
     Dates: start: 20220509
  3. ACARD [Concomitant]
     Indication: Drug therapy
     Dates: start: 20220223
  4. BISOPROLOL [Concomitant]
     Active Substance: BISOPROLOL
     Indication: Drug therapy
     Dates: start: 20220509, end: 20230302
  5. BISOPROLOL [Concomitant]
     Active Substance: BISOPROLOL
     Dates: start: 20230302
  6. ENTRESTO [Concomitant]
     Active Substance: SACUBITRIL\VALSARTAN
     Indication: Drug therapy
     Dosage: 24/26 2 X 1 TABL
     Dates: start: 20220223, end: 20230302
  7. ENTRESTO [Concomitant]
     Active Substance: SACUBITRIL\VALSARTAN
     Dosage: 97/103 2 X 1 TABL
     Dates: start: 20230302
  8. EPLERENONE [Concomitant]
     Active Substance: EPLERENONE
     Indication: Drug therapy
     Dosage: 0,5 TABL. OF 50 MG
     Dates: start: 20220223, end: 20220929
  9. EPLERENONE [Concomitant]
     Active Substance: EPLERENONE
     Dates: start: 20220929
  10. TORSEMIDE [Concomitant]
     Active Substance: TORSEMIDE
     Indication: Drug therapy
     Dates: start: 20220509
  11. EZEHRON [Concomitant]
     Indication: Drug therapy
     Dates: start: 20220223, end: 20220929
  12. ATORVASTATIN [Concomitant]
     Active Substance: ATORVASTATIN
     Indication: Drug therapy
     Dates: start: 20220929
  13. CLOPIDOGREL BISULFATE [Concomitant]
     Active Substance: CLOPIDOGREL BISULFATE
     Indication: Drug therapy
     Dates: start: 20220929, end: 20221229

REACTIONS (1)
  - Angioplasty [Recovered/Resolved]

NARRATIVE: CASE EVENT DATE: 20220629
